FAERS Safety Report 4454560-5 (Version None)
Quarter: 2004Q3

REPORT INFORMATION
  Report Type: 
  Country: None (occurrence: None)
  Receive Date: 20040921
  Receipt Date: 20040906
  Transmission Date: 20050211
  Serious: Yes (Death)
  Sender: FDA-Public Use
  Company Number: JP-JNJFOC-20040601721

PATIENT
  Sex: Male

DRUGS (4)
  1. FENTANYL [Suspect]
     Route: 062
     Dates: start: 20040317, end: 20040404
  2. FENTANYL [Suspect]
     Indication: CANCER PAIN
     Route: 062
     Dates: start: 20040317, end: 20040404
  3. DICLOFENAC SODIUM [Concomitant]
     Route: 054
  4. DICLOFENAC SODIUM [Concomitant]
     Indication: CANCER PAIN
     Route: 054

REACTIONS (1)
  - MALIGNANT NEOPLASM PROGRESSION [None]
